FAERS Safety Report 8442394-6 (Version None)
Quarter: 2012Q2

REPORT INFORMATION
  Report Type: 
  Country: None (occurrence: None)
  Receive Date: 20120323
  Receipt Date: 20110824
  Transmission Date: 20120825
  Serious: Yes (Hospitalization, Other)
  Sender: FDA-Public Use
  Company Number: 163-21880-11063441

PATIENT
  Age: 63 Year
  Sex: Female

DRUGS (12)
  1. CALCIUM [Concomitant]
  2. GLYBURIDE [Concomitant]
  3. METFORMIN HCL [Concomitant]
  4. SYNTHROID [Concomitant]
  5. COUMADIN [Concomitant]
  6. LENALIDOMIDE [Suspect]
     Indication: MULTIPLE MYELOMA
     Dosage: 10 MG, X 21 DAYS, PO
     Route: 048
     Dates: start: 20101020, end: 20110824
  7. PRILOSEC [Concomitant]
  8. OXYCONTIN [Concomitant]
  9. PLAVIX [Concomitant]
  10. DEXAMETHASONE [Concomitant]
  11. FLUOXETINE [Concomitant]
  12. IRON [Concomitant]

REACTIONS (5)
  - FALL [None]
  - ANAEMIA [None]
  - PUBIS FRACTURE [None]
  - ASTHENIA [None]
  - PAIN [None]
